FAERS Safety Report 4876909-1 (Version None)
Quarter: 2005Q4

REPORT INFORMATION
  Report Type: 
  Country: None (occurrence: None)
  Receive Date: 20051206
  Receipt Date: 20050802
  Transmission Date: 20060501
  Serious: No
  Sender: FDA-Public Use
  Company Number: USA0507103050

PATIENT
  Age: 64 Year
  Sex: Female

DRUGS (10)
  1. CYMBALTA [Suspect]
     Indication: DEPRESSION
     Dosage: 20 MG DAY
     Dates: start: 20050712
  2. LANOXIN [Concomitant]
  3. COZAAR [Concomitant]
  4. TENORMIN [Concomitant]
  5. LIPITOR [Concomitant]
  6. RANITIDINE [Concomitant]
  7. PERCOCET [Concomitant]
  8. TYLENOL (CAPLET) [Concomitant]
  9. VALIUM [Concomitant]
  10. MAXZIDE [Concomitant]

REACTIONS (4)
  - DYSPEPSIA [None]
  - FATIGUE [None]
  - HEARING IMPAIRED [None]
  - NAUSEA [None]
